FAERS Safety Report 9001843 (Version 2)
Quarter: 2013Q1

REPORT INFORMATION
  Report Type: Spontaneous
  Country: FR (occurrence: FR)
  Receive Date: 20130107
  Receipt Date: 20130129
  Transmission Date: 20140127
  Serious: Yes (Other)
  Sender: FDA-Public Use
  Company Number: FR-ROCHE-1174613

PATIENT
  Age: 87 Year
  Sex: Female

DRUGS (1)
  1. RIVOTRIL [Suspect]
     Indication: EPILEPSY
     Route: 041
     Dates: start: 20121119, end: 20121119

REACTIONS (3)
  - Sudden onset of sleep [Recovered/Resolved]
  - Bradycardia [Recovered/Resolved]
  - Hypotension [Recovered/Resolved]
